FAERS Safety Report 24128020 (Version 2)
Quarter: 2024Q4

REPORT INFORMATION
  Report Type: Spontaneous
  Country: NZ (occurrence: NZ)
  Receive Date: 20240723
  Receipt Date: 20241120
  Transmission Date: 20250114
  Serious: Yes (Death)
  Sender: MYLAN
  Company Number: NZ-MYLANLABS-2024M1068380

PATIENT
  Age: 54 Year
  Sex: Male
  Weight: 111 kg

DRUGS (2)
  1. CLOZARIL [Suspect]
     Active Substance: CLOZAPINE
     Indication: Schizophrenia
     Dosage: UNK
     Route: 048
     Dates: start: 20130122
  2. CLOZARIL [Suspect]
     Active Substance: CLOZAPINE
     Dosage: 100 MILLIGRAM, PM (THREE DOSAGE FORM, AT  NIGHT)
     Route: 048
     Dates: start: 20200407

REACTIONS (1)
  - Death [Fatal]

NARRATIVE: CASE EVENT DATE: 20240719
